FAERS Safety Report 7489976-6 (Version None)
Quarter: 2011Q2

REPORT INFORMATION
  Report Type: 
  Country: None (occurrence: None)
  Receive Date: 20110519
  Receipt Date: 20110506
  Transmission Date: 20111010
  Serious: Yes (Other)
  Sender: FDA-Public Use
  Company Number: IT-JNJFOC-20110504369

PATIENT
  Sex: Male

DRUGS (4)
  1. SYMBICORT [Concomitant]
     Route: 065
  2. DICLOFENAC SODIUM [Suspect]
     Indication: PRODUCT USED FOR UNKNOWN INDICATION
     Route: 065
  3. LEVOFLOXACIN [Suspect]
     Indication: OROPHARYNGEAL PAIN
     Route: 042
     Dates: start: 20110318
  4. SPIRIVA [Concomitant]
     Route: 065

REACTIONS (2)
  - URTICARIA [None]
  - LEUKOCYTOSIS [None]
